FAERS Safety Report 25907561 (Version 1)
Quarter: 2025Q4

REPORT INFORMATION
  Report Type: Spontaneous
  Country: SA (occurrence: SA)
  Receive Date: 20251010
  Receipt Date: 20251010
  Transmission Date: 20260118
  Serious: Yes (Other)
  Sender: RANBAXY
  Company Number: SA-SUN PHARMACEUTICAL INDUSTRIES LTD-2025RR-530911

PATIENT
  Age: 24 Year
  Sex: Male

DRUGS (1)
  1. ISOTRETINOIN [Suspect]
     Active Substance: ISOTRETINOIN
     Indication: Hidradenitis
     Dosage: 20 MILLIGRAM, BID
     Route: 065

REACTIONS (8)
  - Off label use [Unknown]
  - Arthralgia [Recovered/Resolved]
  - Constipation [Recovered/Resolved]
  - Dry skin [Recovered/Resolved]
  - Fatigue [Recovered/Resolved]
  - Headache [Recovered/Resolved]
  - Sleep disorder [Recovered/Resolved]
  - Nightmare [Recovered/Resolved]
